FAERS Safety Report 6983452-2 (Version None)
Quarter: 2010Q3

REPORT INFORMATION
  Report Type: 
  Country: None (occurrence: None)
  Receive Date: 20100914
  Receipt Date: 20080528
  Transmission Date: 20110219
  Serious: No
  Sender: FDA-Public Use
  Company Number: US-WYE-H04308608

PATIENT
  Sex: Female

DRUGS (2)
  1. ADVIL LIQUI-GELS [Suspect]
     Indication: PAIN
     Route: 048
     Dates: start: 19970101, end: 19970101
  2. MOTRIN [Suspect]
     Indication: BACK PAIN
     Route: 048
     Dates: start: 19970101, end: 19970101

REACTIONS (5)
  - BACK PAIN [None]
  - BLOOD URINE PRESENT [None]
  - DRUG EFFECT DECREASED [None]
  - OEDEMA [None]
  - RENAL INJURY [None]
